FAERS Safety Report 24267587 (Version 1)
Quarter: 2024Q3

REPORT INFORMATION
  Report Type: Report from Study
  Country: US (occurrence: US)
  Receive Date: 20240830
  Receipt Date: 20240830
  Transmission Date: 20241017
  Serious: Yes (Other)
  Sender: BAYER
  Company Number: US-BAYER-2024A046709

PATIENT
  Age: 78 Year
  Sex: Female
  Weight: 51.701 kg

DRUGS (23)
  1. ADEMPAS [Suspect]
     Active Substance: RIOCIGUAT
     Indication: Pulmonary arterial hypertension
     Dosage: UNK
     Dates: start: 20240116
  2. ADEMPAS [Suspect]
     Active Substance: RIOCIGUAT
     Indication: Pulmonary arterial hypertension
     Dosage: 2 MG, TID
     Route: 048
  3. EYLEA [Concomitant]
     Active Substance: AFLIBERCEPT
  4. AMLODIPINE BESYLATE [Concomitant]
     Active Substance: AMLODIPINE BESYLATE
  5. ALBUTEROL\IPRATROPIUM [Concomitant]
     Active Substance: ALBUTEROL\IPRATROPIUM
  6. MINERALS\VITAMINS [Concomitant]
     Active Substance: MINERALS\VITAMINS
  7. FOLIC ACID [Concomitant]
     Active Substance: FOLIC ACID
  8. ALBUTEROL SULFATE [Concomitant]
     Active Substance: ALBUTEROL SULFATE
  9. OLMESARTAN MEDOXOMIL [Concomitant]
     Active Substance: OLMESARTAN MEDOXOMIL
  10. FLONASE ALLERGY RELIEF [Concomitant]
     Active Substance: FLUTICASONE PROPIONATE
  11. CALCIUM\CHOLECALCIFEROL [Concomitant]
     Active Substance: CALCIUM\CHOLECALCIFEROL
  12. VITAMIN D2 [Concomitant]
     Active Substance: ERGOCALCIFEROL
  13. METOPROLOL SUCCINATE [Concomitant]
     Active Substance: METOPROLOL SUCCINATE
  14. METHOTREXATE [Concomitant]
     Active Substance: METHOTREXATE
  15. BUMETANIDE [Concomitant]
     Active Substance: BUMETANIDE
  16. MONTELUKAST SODIUM [Concomitant]
     Active Substance: MONTELUKAST\MONTELUKAST SODIUM
  17. SPIRIVA RESPIMAT [Concomitant]
     Active Substance: TIOTROPIUM BROMIDE
  18. VENTOLIN HFA [Concomitant]
     Active Substance: ALBUTEROL SULFATE
  19. OXYGEN [Concomitant]
     Active Substance: OXYGEN
  20. RALOXIFENE [Concomitant]
     Active Substance: RALOXIFENE
  21. SYMBICORT [Concomitant]
     Active Substance: BUDESONIDE\FORMOTEROL FUMARATE DIHYDRATE
  22. ASCORBIC ACID [Concomitant]
     Active Substance: ASCORBIC ACID
  23. VITAMINS [Concomitant]
     Active Substance: VITAMINS

REACTIONS (21)
  - Syncope [Recovered/Resolved]
  - Blood pressure decreased [Recovered/Resolved]
  - Dyspnoea exertional [Recovered/Resolved]
  - Pain in extremity [Recovered/Resolved]
  - Productive cough [Recovered/Resolved]
  - Fatigue [Recovered/Resolved]
  - Aspiration pleural cavity [Recovered/Resolved]
  - Aspiration pleural cavity [Recovered/Resolved]
  - Aspiration pleural cavity [None]
  - Joint swelling [Recovered/Resolved]
  - Hypotension [Recovered/Resolved]
  - Nausea [Recovered/Resolved]
  - Dizziness [Recovered/Resolved]
  - Peripheral swelling [Recovered/Resolved]
  - Oedema peripheral [Recovered/Resolved]
  - Dizziness postural [Recovered/Resolved]
  - Nausea [Recovered/Resolved]
  - COVID-19 [Not Recovered/Not Resolved]
  - Dizziness [None]
  - Weight decreased [None]
  - Blood pressure systolic decreased [None]

NARRATIVE: CASE EVENT DATE: 20240223
